FAERS Safety Report 4330750-7 (Version None)
Quarter: 2004Q1

REPORT INFORMATION
  Report Type: 
  Country: None (occurrence: None)
  Receive Date: 20040331
  Receipt Date: 20040312
  Transmission Date: 20041129
  Serious: No
  Sender: FDA-Public Use
  Company Number: 02100-JPN-04-0045

PATIENT
  Age: 71 Year
  Sex: Male

DRUGS (8)
  1. CILOSTAZOL [Suspect]
     Indication: ATHEROSCLEROSIS
     Dosage: 200 MG ORAL
     Route: 048
     Dates: start: 20031220, end: 20040109
  2. CILOSTAZOL [Suspect]
     Indication: CEREBRAL INFARCTION
     Dosage: 200 MG ORAL
     Route: 048
     Dates: start: 20031220, end: 20040109
  3. CILOSTAZOL [Suspect]
     Indication: THROMBOSIS
     Dosage: 200 MG ORAL
     Route: 048
     Dates: start: 20031220, end: 20040109
  4. CILOSTAZOL [Suspect]
     Indication: ATHEROSCLEROSIS
     Dosage: 200 MG ORAL
     Route: 048
     Dates: start: 20040115, end: 20040227
  5. CILOSTAZOL [Suspect]
     Indication: CEREBRAL INFARCTION
     Dosage: 200 MG ORAL
     Route: 048
     Dates: start: 20040115, end: 20040227
  6. CILOSTAZOL [Suspect]
     Indication: THROMBOSIS
     Dosage: 200 MG ORAL
     Route: 048
     Dates: start: 20040115, end: 20040227
  7. VALSARTAN [Concomitant]
  8. REBAMIPIDE [Concomitant]

REACTIONS (3)
  - CEREBRAL ARTERY OCCLUSION [None]
  - POST PROCEDURAL COMPLICATION [None]
  - SUBDURAL HAEMATOMA [None]
